FAERS Safety Report 14181427 (Version 1)
Quarter: 2017Q4

REPORT INFORMATION
  Report Type: Spontaneous
  Country: US (occurrence: US)
  Receive Date: 20171110
  Receipt Date: 20171110
  Transmission Date: 20180321
  Serious: Yes (Disabling)
  Sender: FDA-Public Use
  Company Number: None

PATIENT
  Age: 9 Year
  Sex: Male
  Weight: 36 kg

DRUGS (5)
  1. QUERCETIN [Concomitant]
     Active Substance: QUERCETIN
  2. VITAMIN D3 [Concomitant]
     Active Substance: CHOLECALCIFEROL
  3. SEA BUCKTHORN OIL WITH OMEGA 369 [Concomitant]
  4. CLOBETASTOL [Suspect]
     Active Substance: CLOBETASOL
     Indication: ECZEMA
     Dosage: AS NEEEDED TOPICAL
     Route: 061
  5. VITAMIN C [Concomitant]
     Active Substance: ASCORBIC ACID

REACTIONS (2)
  - Pain [None]
  - Skin burning sensation [None]

NARRATIVE: CASE EVENT DATE: 20170909
